FAERS Safety Report 4783111-0 (Version None)
Quarter: 2005Q3

REPORT INFORMATION
  Report Type: 
  Country: None (occurrence: None)
  Receive Date: 20050914
  Receipt Date: 20050623
  Transmission Date: 20060218
  Serious: Yes (Hospitalization)
  Sender: FDA-Public Use
  Company Number: 163-20785-05060356

PATIENT
  Age: 52 Year
  Sex: Female

DRUGS (18)
  1. THALOMID [Suspect]
     Indication: MULTIPLE MYELOMA
     Dosage: ORAL; SEE IMAGE
     Route: 048
     Dates: start: 20050112
  2. THALOMID [Suspect]
     Indication: MULTIPLE MYELOMA
     Dosage: ORAL; SEE IMAGE
     Route: 048
     Dates: start: 20050217
  3. THALOMID [Suspect]
     Indication: MULTIPLE MYELOMA
     Dosage: ORAL; SEE IMAGE
     Route: 048
     Dates: start: 20050401
  4. MELPHALAN (MELPHALAN) [Suspect]
     Indication: MULTIPLE MYELOMA
     Dosage: 350 MG, INTRAVENOUS
     Route: 042
     Dates: start: 20050331, end: 20050331
  5. MELPHALAN (MELPHALAN) [Suspect]
     Indication: MULTIPLE MYELOMA
     Dosage: 350 MG, INTRAVENOUS
     Route: 042
     Dates: start: 20050607, end: 20050607
  6. DEXAMETHASONE [Suspect]
     Indication: MULTIPLE MYELOMA
     Dosage: 40 MG, DAILY
     Dates: start: 20050112
  7. DEXAMETHASONE [Suspect]
     Indication: MULTIPLE MYELOMA
     Dosage: 40 MG, DAILY
     Dates: start: 20050217
  8. DEXAMETHASONE [Suspect]
     Indication: MULTIPLE MYELOMA
     Dosage: 40 MG, DAILY
     Dates: start: 20050401
  9. VELCADE [Suspect]
     Indication: MULTIPLE MYELOMA
     Dates: start: 20050112
  10. VELCADE [Suspect]
     Indication: MULTIPLE MYELOMA
     Dates: start: 20050217
  11. CISPLATIN [Suspect]
     Indication: MULTIPLE MYELOMA
     Dates: start: 20050112
  12. CISPLATIN [Suspect]
     Indication: MULTIPLE MYELOMA
     Dates: start: 20050217
  13. ADRIAMYCIN PFS [Suspect]
     Indication: MULTIPLE MYELOMA
     Dates: start: 20050112
  14. ADRIAMYCIN PFS [Suspect]
     Indication: MULTIPLE MYELOMA
     Dates: start: 20050217
  15. CYCLOPHOSPHAMIDE [Suspect]
     Indication: MULTIPLE MYELOMA
     Dates: start: 20050112
  16. CYCLOPHOSPHAMIDE [Suspect]
     Indication: MULTIPLE MYELOMA
     Dates: start: 20050217
  17. ETOPOSIDE [Suspect]
     Indication: MULTIPLE MYELOMA
     Dates: start: 20050112
  18. ETOPOSIDE [Suspect]
     Indication: MULTIPLE MYELOMA
     Dates: start: 20050117

REACTIONS (6)
  - DEHYDRATION [None]
  - LEUKOPENIA [None]
  - MUCOSAL INFLAMMATION [None]
  - PAIN [None]
  - PYREXIA [None]
  - THROMBOCYTOPENIA [None]
